FAERS Safety Report 19143773 (Version 1)
Quarter: 2021Q2

REPORT INFORMATION
  Report Type: Spontaneous
  Country: JP (occurrence: JP)
  Receive Date: 20210415
  Receipt Date: 20210415
  Transmission Date: 20210717
  Serious: Yes (Hospitalization)
  Sender: FDA-Public Use
  Company Number: JP-STRIDES ARCOLAB LIMITED-2021SP004206

PATIENT
  Age: 71 Year
  Sex: Male

DRUGS (7)
  1. CYCLOSPORINE. [Suspect]
     Active Substance: CYCLOSPORINE
     Indication: MESENTERIC PANNICULITIS
     Dosage: 150 MG/DAY
     Route: 065
  2. PREDNISOLONE. [Suspect]
     Active Substance: PREDNISOLONE
     Dosage: 60 MG/DAY
     Route: 048
  3. PREDNISOLONE. [Suspect]
     Active Substance: PREDNISOLONE
     Dosage: 15 MG/DAY
     Route: 048
  4. PREDNISOLONE. [Suspect]
     Active Substance: PREDNISOLONE
     Dosage: PREDNISOLONE TAPERING
     Route: 065
  5. CYCLOSPORINE. [Suspect]
     Active Substance: CYCLOSPORINE
     Dosage: 100 MG/DAY
     Route: 065
  6. PREDNISOLONE. [Suspect]
     Active Substance: PREDNISOLONE
     Indication: MESENTERIC PANNICULITIS
     Dosage: 15 MG/DAY
     Route: 048
  7. PREDNISOLONE. [Suspect]
     Active Substance: PREDNISOLONE
     Dosage: 30 MG/DAY
     Route: 048

REACTIONS (6)
  - Haemophagocytic lymphohistiocytosis [Recovered/Resolved]
  - Pneumonia bacterial [Unknown]
  - Disseminated tuberculosis [Unknown]
  - Off label use [Unknown]
  - Escherichia infection [Unknown]
  - Diabetes mellitus [Recovered/Resolved]
